FAERS Safety Report 14589748 (Version 1)
Quarter: 2018Q1

REPORT INFORMATION
  Report Type: Report from Study
  Country: US (occurrence: US)
  Receive Date: 20180302
  Receipt Date: 20180302
  Transmission Date: 20180509
  Serious: Yes (Death, Life-Threatening, Hospitalization)
  Sender: FDA-Public Use
  Company Number: US-ROCHE-2072660

PATIENT
  Sex: Female

DRUGS (15)
  1. COUMADIN [Concomitant]
     Active Substance: WARFARIN SODIUM
  2. EFFEXOR [Concomitant]
     Active Substance: VENLAFAXINE HYDROCHLORIDE
  3. LASIX [Concomitant]
     Active Substance: FUROSEMIDE
     Route: 042
  4. OCREVUS [Suspect]
     Active Substance: OCRELIZUMAB
     Route: 042
  5. NACL [Concomitant]
     Active Substance: SODIUM CHLORIDE
  6. LEVOTHROID [Concomitant]
     Active Substance: LEVOTHYROXINE SODIUM
     Route: 048
  7. ACTIVASE [Suspect]
     Active Substance: ALTEPLASE
     Indication: PRODUCT USED FOR UNKNOWN INDICATION
     Dosage: 100 MG IN 100 ML INFUSION ON 07/OCT/2017
     Route: 042
  8. OCREVUS [Suspect]
     Active Substance: OCRELIZUMAB
     Route: 042
  9. CITRIC ACID [Concomitant]
     Active Substance: CITRIC ACID MONOHYDRATE
     Route: 061
  10. MILK OF MAGNESIA [Concomitant]
     Active Substance: MAGNESIUM HYDROXIDE
     Dosage: 2400 MG/10 ML
     Route: 048
  11. DULCOLAX (BISACODYL) [Concomitant]
     Active Substance: BISACODYL
     Route: 054
  12. PRILOSEC [Concomitant]
     Active Substance: OMEPRAZOLE MAGNESIUM
  13. LANOXIN [Concomitant]
     Active Substance: DIGOXIN
     Route: 042
  14. OCREVUS [Suspect]
     Active Substance: OCRELIZUMAB
     Indication: PRIMARY PROGRESSIVE MULTIPLE SCLEROSIS
     Dosage: DOSE ON 26/JUL/2017
     Route: 042
  15. PROVIGIL [Concomitant]
     Active Substance: MODAFINIL

REACTIONS (16)
  - Urosepsis [Fatal]
  - Blood lactic acid increased [Unknown]
  - Hypotension [Unknown]
  - Leukocytosis [Unknown]
  - Hypoalbuminaemia [Unknown]
  - Fluid overload [Unknown]
  - Atrial fibrillation [Unknown]
  - Liver function test increased [Unknown]
  - Hypoxia [Unknown]
  - Chest pain [Unknown]
  - Asthenia [Unknown]
  - Musculoskeletal pain [Unknown]
  - Disseminated intravascular coagulation [Unknown]
  - Haematoma [Unknown]
  - Acute respiratory failure [Fatal]
  - Oedema peripheral [Unknown]
